FAERS Safety Report 22340960 (Version 1)
Quarter: 2023Q2

REPORT INFORMATION
  Report Type: Spontaneous
  Country: None (occurrence: US)
  Receive Date: 20230518
  Receipt Date: 20230518
  Transmission Date: 20230722
  Serious: Yes (Other)
  Sender: FDA-Public Use
  Company Number: US-GREER Laboratories, Inc.-2141682

PATIENT
  Age: 70 Year
  Sex: Female
  Weight: 90.909 kg

DRUGS (19)
  1. ASPEN POLLEN [Suspect]
     Active Substance: POPULUS TREMULOIDES POLLEN
     Indication: Rhinitis allergic
     Route: 058
     Dates: start: 20221129
  2. STANDARDIZED MITE, DERMATOPHAGOIDES FARINAE [Suspect]
     Active Substance: DERMATOPHAGOIDES FARINAE
     Route: 058
     Dates: start: 20221129
  3. COTTON LINTERS [Suspect]
     Active Substance: COTTON FIBER
     Route: 058
     Dates: start: 20221129
  4. KAPOK [Suspect]
     Active Substance: CEIBA PENTANDRA FIBER
     Route: 058
     Dates: start: 20221129
  5. CLADOSPORIUM SPHAEROSPERMUM [Suspect]
     Active Substance: CLADOSPORIUM SPHAEROSPERMUM
     Route: 058
     Dates: start: 20221129
  6. AUREOBASIDIUM PULLULANS [Suspect]
     Active Substance: AUREOBASIDIUM PULLULANS VAR. PULLUTANS
     Route: 058
     Dates: start: 20221129
  7. ACREMONIUM STRICTUM [Suspect]
     Active Substance: SAROCLADIUM STRICTUM
     Route: 058
     Dates: start: 20221129
  8. ASPERGILLUS MIX [Suspect]
     Active Substance: ASPERGILLUS FLAVUS\ASPERGILLUS FUMIGATUS\ASPERGILLUS NIDULANS\ASPERGILLUS NIGER VAR. NIGER\EUROTIUM
     Route: 058
     Dates: start: 20221129
  9. 11 TREE POLLEN MIX [Suspect]
     Active Substance: ACER SACCHARUM POLLEN\BETULA NIGRA POLLEN\CARYA OVATA POLLEN\FAGUS GRANDIFOLIA POLLEN\FRAXINUS AMERI
     Dates: start: 20221129
  10. ASPIRIN [Concomitant]
     Active Substance: ASPIRIN
  11. BENAZEPRIL [Concomitant]
     Active Substance: BENAZEPRIL HYDROCHLORIDE
  12. CIPROFLOXACIN [Concomitant]
     Active Substance: CIPROFLOXACIN
  13. LEVOTHYROXINE [Concomitant]
     Active Substance: LEVOTHYROXINE
  14. METFORMIN [Concomitant]
     Active Substance: METFORMIN HYDROCHLORIDE
  15. HYDROCHLOROTHIAZIDE [Concomitant]
     Active Substance: HYDROCHLOROTHIAZIDE
  16. NYSTATIN [Concomitant]
     Active Substance: NYSTATIN
  17. OXYBUTYNIN CHLORIDE [Concomitant]
     Active Substance: OXYBUTYNIN CHLORIDE
  18. POTASSIUM CHLORIDE [Concomitant]
     Active Substance: POTASSIUM CHLORIDE
  19. ALBUTEROL [Concomitant]
     Active Substance: ALBUTEROL

REACTIONS (5)
  - Malaise [Recovered/Resolved]
  - Fatigue [Recovered/Resolved]
  - Hypertension [Recovered/Resolved]
  - Platelet count abnormal [Recovered/Resolved]
  - White blood cell count abnormal [Recovered/Resolved]

NARRATIVE: CASE EVENT DATE: 20230323
